FAERS Safety Report 5625537-9 (Version None)
Quarter: 2008Q1

REPORT INFORMATION
  Report Type: 
  Country: None (occurrence: None)
  Receive Date: 20080211
  Receipt Date: 20080211
  Transmission Date: 20080703
  Serious: Yes (Hospitalization)
  Sender: FDA-Public Use
  Company Number: None

PATIENT
  Sex: Male
  Weight: 75.6 kg

DRUGS (5)
  1. CYCLOPHOSPHAMIDE [Suspect]
     Dosage: 9000 MG
  2. METHOTREXATE [Suspect]
     Dosage: 30 MG
  3. RAPAMYCIN (SIROLIMUS, RAPAMUNE) [Suspect]
     Dosage: 32 MG
  4. TACROLIMUS [Suspect]
     Dosage: 13.7 MG
  5. THIOTEPA [Suspect]
     Dosage: 750 MG

REACTIONS (6)
  - BONE MARROW TRANSPLANT [None]
  - FLUID OVERLOAD [None]
  - LEUKAEMIA RECURRENT [None]
  - RENAL FAILURE ACUTE [None]
  - RESPIRATORY DISTRESS [None]
  - SEPSIS [None]
